FAERS Safety Report 8184277-5 (Version None)
Quarter: 2012Q1

REPORT INFORMATION
  Report Type: 
  Country: None (occurrence: None)
  Receive Date: 20120207
  Receipt Date: 20110414
  Transmission Date: 20120608
  Serious: Yes (Other)
  Sender: FDA-Public Use
  Company Number: 2011028230

PATIENT
  Age: 29 Year
  Sex: Female
  Weight: 72.5755 kg

DRUGS (5)
  1. ORACEA [Concomitant]
  2. ACZONE (DAPSONE) [Concomitant]
  3. DESONATE (DESONIDE) [Concomitant]
  4. VIVAGLOBIN [Suspect]
     Indication: IMMUNODEFICIENCY COMMON VARIABLE
     Dosage: (11.2 G 1X/WEEK, INFUSED 70ML OVER 1-2 HOURS SUBCUTANEOUS), ()
     Route: 058
     Dates: start: 20110313
  5. VIVAGLOBIN [Suspect]
     Indication: IMMUNODEFICIENCY COMMON VARIABLE
     Dosage: (11.2 G 1X/WEEK, INFUSED 70ML OVER 1-2 HOURS SUBCUTANEOUS), ()
     Route: 058
     Dates: start: 20100707

REACTIONS (1)
  - PANCYTOPENIA [None]
